FAERS Safety Report 6888473-6 (Version None)
Quarter: 2010Q3

REPORT INFORMATION
  Report Type: 
  Country: None (occurrence: None)
  Receive Date: 20100730
  Receipt Date: 20100719
  Transmission Date: 20110219
  Serious: Yes (Hospitalization)
  Sender: FDA-Public Use
  Company Number: PHFR2010GB00901

PATIENT
  Sex: Female

DRUGS (2)
  1. CLOZARIL [Suspect]
     Indication: SCHIZOPHRENIA
     Dosage: UNK
     Route: 048
     Dates: start: 20081117
  2. CLOZARIL [Suspect]
     Dosage: UNK

REACTIONS (9)
  - CARDIOMYOPATHY [None]
  - CHEST DISCOMFORT [None]
  - DIZZINESS [None]
  - HYPOTENSION [None]
  - INFLUENZA LIKE ILLNESS [None]
  - PLEURAL EFFUSION [None]
  - PLEURISY [None]
  - PNEUMONIA [None]
  - PULMONARY OEDEMA [None]
